FAERS Safety Report 7417643-3 (Version None)
Quarter: 2011Q2

REPORT INFORMATION
  Report Type: 
  Country: None (occurrence: None)
  Receive Date: 20110415
  Receipt Date: 20110405
  Transmission Date: 20111010
  Serious: Yes (Hospitalization, Other)
  Sender: FDA-Public Use
  Company Number: PHHY2011US26756

PATIENT
  Sex: Female

DRUGS (15)
  1. FLOMAX [Concomitant]
     Dosage: 4 MG, QD
  2. METAMUCIL-2 [Concomitant]
     Dosage: UNK, EVERY DAY
  3. MIRALAX [Concomitant]
     Dosage: 17 G, UNK
  4. MACRODANTIN [Concomitant]
     Dosage: 50 MG, QD
  5. CRANBERRY JUICE POWDER [Concomitant]
     Dosage: 425 MG, BID
  6. PEPCID [Concomitant]
     Dosage: UNK, 1X DAILY
  7. BACID [Concomitant]
     Dosage: 18 -250 MG, BID
  8. BONIVA [Concomitant]
     Dosage: 150 MG, 1 X MONTH
  9. SENNA [Concomitant]
     Dosage: UNK, AS NEEDED
  10. ENSURE PLUS [Concomitant]
     Dosage: UNK, BID
  11. ZOCOR [Concomitant]
     Dosage: 20 MG, QD
  12. CALCIUM WITH VITAMIN D [Concomitant]
     Dosage: UNK, BID
  13. EXELON [Suspect]
     Dosage: 4.6 MG DAILY
     Route: 062
  14. TAB-A-VITE [Concomitant]
     Dosage: UNK
  15. METOPROLOL TARTRATE [Concomitant]
     Dosage: 28 MG, BID

REACTIONS (7)
  - URINARY TRACT INFECTION [None]
  - WRONG TECHNIQUE IN DRUG USAGE PROCESS [None]
  - MUSCULAR WEAKNESS [None]
  - CONFUSIONAL STATE [None]
  - DEHYDRATION [None]
  - FATIGUE [None]
  - CEREBRAL HAEMORRHAGE [None]
